FAERS Safety Report 4815531-X (Version None)
Quarter: 2005Q4

REPORT INFORMATION
  Report Type: 
  Country: None (occurrence: None)
  Receive Date: 20051028
  Receipt Date: 20051028
  Transmission Date: 20060501
  Serious: Yes (Hospitalization)
  Sender: FDA-Public Use
  Company Number: None

PATIENT
  Age: 57 Year
  Sex: Male
  Weight: 73 kg

DRUGS (8)
  1. PAMIDRONATE DISODIUM [Suspect]
     Indication: OSTEOPOROSIS
     Dosage: 30 MG ONCE IV BOLUS
     Route: 040
     Dates: start: 20050503, end: 20050503
  2. ALBUTEROL ORAL INH [Concomitant]
  3. CALCIUM 500 MG/VITAMIN D [Concomitant]
  4. CYANOCOBALAMIN [Concomitant]
  5. ERGOCALCIFEROL -VIT D [Concomitant]
  6. FLUNISOLIDE NASAL SOLN [Concomitant]
  7. FLUNISOLIDE 250 MCG/MENTHOL  ORAL INH [Concomitant]
  8. IPRATROPRIUM BROMIDE ORAL INH [Concomitant]

REACTIONS (4)
  - DEEP VEIN THROMBOSIS [None]
  - INFUSION SITE REACTION [None]
  - PRURITUS [None]
  - SENSORY DISTURBANCE [None]
